FAERS Safety Report 5811479-2 (Version None)
Quarter: 2008Q3

REPORT INFORMATION
  Report Type: 
  Country: None (occurrence: None)
  Receive Date: 20080711
  Receipt Date: 20080711
  Transmission Date: 20090109
  Serious: Yes (Hospitalization)
  Sender: FDA-Public Use
  Company Number: None

PATIENT
  Sex: Male
  Weight: 94 kg

DRUGS (3)
  1. TREANDA [Suspect]
     Indication: MANTLE CELL LYMPHOMA
     Dosage: 90 MG/M2 DAYS 1, 4 IV
     Route: 042
     Dates: start: 20080219, end: 20080613
  2. BORTEZOMIB [Concomitant]
  3. RITUXIMAB [Concomitant]

REACTIONS (9)
  - ANAEMIA [None]
  - ASTHENIA [None]
  - BLOOD TEST ABNORMAL [None]
  - CONFUSIONAL STATE [None]
  - DISEASE PROGRESSION [None]
  - HYPOPHAGIA [None]
  - LETHARGY [None]
  - NIGHT SWEATS [None]
  - PYREXIA [None]
